FAERS Safety Report 8443356-5 (Version None)
Quarter: 2012Q2

REPORT INFORMATION
  Report Type: 
  Country: None (occurrence: None)
  Receive Date: 20120618
  Receipt Date: 20120607
  Transmission Date: 20120825
  Serious: Yes (Hospitalization, Other)
  Sender: FDA-Public Use
  Company Number: US-BIOGENIDEC-2012BI020209

PATIENT
  Age: 28 Year
  Sex: Female
  Weight: 55 kg

DRUGS (8)
  1. AMANTADINE HCL [Concomitant]
     Indication: TREMOR
     Route: 048
     Dates: end: 20120607
  2. AMANTADINE HCL [Concomitant]
     Indication: FATIGUE
     Route: 048
     Dates: end: 20120607
  3. DITROPAN [Concomitant]
     Indication: POLLAKIURIA
     Route: 048
     Dates: start: 20080101
  4. DITROPAN [Concomitant]
     Indication: MICTURITION URGENCY
     Route: 048
     Dates: start: 20080101
  5. VITAMIN B-12 [Concomitant]
     Indication: PROPHYLAXIS
     Route: 048
     Dates: start: 20080101
  6. TYSABRI [Suspect]
     Indication: MULTIPLE SCLEROSIS
     Route: 042
     Dates: start: 20080721
  7. MAGNESIUM [Concomitant]
     Route: 048
     Dates: start: 20080101
  8. MAGNESIUM [Concomitant]
     Indication: PROPHYLAXIS
     Route: 048
     Dates: start: 20080101

REACTIONS (2)
  - ACUTE PSYCHOSIS [None]
  - PROGRESSIVE MULTIFOCAL LEUKOENCEPHALOPATHY [None]
